FAERS Safety Report 6668049-6 (Version None)
Quarter: 2010Q2

REPORT INFORMATION
  Report Type: 
  Country: None (occurrence: None)
  Receive Date: 20100405
  Receipt Date: 20100326
  Transmission Date: 20101027
  Serious: Yes (Hospitalization, Other)
  Sender: FDA-Public Use
  Company Number: LB-ABBOTT-10P-093-0634902-00

PATIENT
  Age: 45 Year
  Sex: Male

DRUGS (7)
  1. DEPAKINE CHRONO [Suspect]
     Indication: EPILEPSY
     Route: 048
     Dates: end: 20100301
  2. DEPAKINE CHRONO [Suspect]
     Indication: CONVULSION
     Route: 042
     Dates: start: 20100301, end: 20100304
  3. DEPAKINE CHRONO [Suspect]
     Route: 050
     Dates: start: 20100304, end: 20100310
  4. DEPAKINE CHRONO [Suspect]
     Dates: start: 20100310
  5. TEGRETOL [Concomitant]
     Indication: DRUG USE FOR UNKNOWN INDICATION
  6. CLONAZEPAM [Concomitant]
     Indication: DRUG USE FOR UNKNOWN INDICATION
     Dates: end: 20100301
  7. KEPPRA [Concomitant]
     Indication: DRUG USE FOR UNKNOWN INDICATION
     Dates: start: 20100301

REACTIONS (4)
  - CONVULSION [None]
  - DRUG LEVEL DECREASED [None]
  - INCORRECT ROUTE OF DRUG ADMINISTRATION [None]
  - PNEUMONIA [None]
